FAERS Safety Report 10148781 (Version 1)
Quarter: 2014Q2

REPORT INFORMATION
  Report Type: Spontaneous
  Country: CA (occurrence: CA)
  Receive Date: 20140502
  Receipt Date: 20140502
  Transmission Date: 20141212
  Serious: Yes (Death, Other)
  Sender: FDA-Public Use
  Company Number: CA-MERCK-1404CAN015692

PATIENT
  Age: 45 Year
  Sex: Male

DRUGS (5)
  1. SINGULAIR [Suspect]
     Indication: ASTHMA
     Dosage: 10 MG, QD
     Route: 048
     Dates: start: 20130411, end: 20140228
  2. VIMPAT [Concomitant]
     Dosage: 50
  3. LAMOTRIGINE [Concomitant]
     Dosage: 100 MG, TID
  4. DIVALPROEX SODIUM [Concomitant]
     Dosage: 500 MG, BID
  5. BETADERM (BETAMETHASONE VALERATE) [Concomitant]

REACTIONS (4)
  - Cardiac arrest [Fatal]
  - Hypoxia [Fatal]
  - Convulsion [Fatal]
  - Epilepsy [Fatal]
